FAERS Safety Report 5780150-8 (Version None)
Quarter: 2008Q2

REPORT INFORMATION
  Report Type: 
  Country: None (occurrence: None)
  Receive Date: 20080620
  Receipt Date: 20080613
  Transmission Date: 20081010
  Serious: Yes (Hospitalization, Other)
  Sender: FDA-Public Use
  Company Number: GB-BAYER-200819363GPV

PATIENT
  Age: 56 Year
  Sex: Male

DRUGS (4)
  1. ASPIRIN [Suspect]
     Indication: ANTICOAGULANT THERAPY
     Route: 065
  2. SIMVASTATIN [Suspect]
     Indication: DRUG USE FOR UNKNOWN INDICATION
     Route: 065
  3. SIMVASTATIN [Suspect]
     Route: 065
  4. CLOPIDOGREL [Suspect]
     Indication: ANTICOAGULANT THERAPY
     Route: 065

REACTIONS (4)
  - COMPARTMENT SYNDROME [None]
  - ERYTHEMA NODOSUM [None]
  - HAEMORRHAGE [None]
  - MYOSITIS [None]
